FAERS Safety Report 5582846-X (Version None)
Quarter: 2007Q4

REPORT INFORMATION
  Report Type: 
  Country: None (occurrence: None)
  Receive Date: 20071231
  Receipt Date: 20071225
  Transmission Date: 20080405
  Serious: Yes (Death, Life-Threatening, Hospitalization, Disabling, Other)
  Sender: FDA-Public Use
  Company Number: RENA-12309

PATIENT
  Age: 59 Year
  Sex: Female

DRUGS (1)
  1. RENAGEL [Suspect]
     Indication: HYPERPHOSPHATAEMIA
     Dosage: 3 U, TID, ORAL
     Route: 048
     Dates: start: 20070613

REACTIONS (14)
  - ABSCESS LIMB [None]
  - BACTEROIDES INFECTION [None]
  - COMA [None]
  - DIABETIC FOOT INFECTION [None]
  - ESCHERICHIA INFECTION [None]
  - FAT NECROSIS [None]
  - GANGRENE [None]
  - IMPAIRED HEALING [None]
  - LEG AMPUTATION [None]
  - REFUSAL OF TREATMENT BY RELATIVE [None]
  - SEPTIC SHOCK [None]
  - SKIN NECROSIS [None]
  - WOUND INFECTION BACTERIAL [None]
  - WOUND INFECTION STAPHYLOCOCCAL [None]
